FAERS Safety Report 4427580-4 (Version None)
Quarter: 2004Q3

REPORT INFORMATION
  Report Type: 
  Country: None (occurrence: None)
  Receive Date: 20040817
  Receipt Date: 20030407
  Transmission Date: 20050211
  Serious: Yes (Hospitalization, Other)
  Sender: FDA-Public Use
  Company Number: US-MERCK-0304USA00762

PATIENT
  Age: 50 Year
  Sex: Male
  Weight: 109 kg

DRUGS (8)
  1. ASPIRIN [Concomitant]
     Route: 065
  2. ATENOLOL [Concomitant]
     Route: 065
  3. PEPCID [Concomitant]
     Indication: GASTRITIS
     Route: 065
  4. GLYBURIDE [Concomitant]
     Route: 065
     Dates: start: 19920101
  5. MOTRIN [Concomitant]
     Route: 065
     Dates: start: 19970101
  6. PRINIVIL [Concomitant]
     Route: 048
  7. VIOXX [Suspect]
     Indication: BACK PAIN
     Route: 048
     Dates: start: 20010616, end: 20010801
  8. ZOCOR [Concomitant]
     Route: 048

REACTIONS (11)
  - ANGINA PECTORIS [None]
  - ANGINA UNSTABLE [None]
  - CARDIOMEGALY [None]
  - CORONARY ARTERY DISEASE [None]
  - DEPRESSION [None]
  - GASTROOESOPHAGEAL REFLUX DISEASE [None]
  - INJURY [None]
  - MIGRAINE [None]
  - RASH PRURITIC [None]
  - SCROTAL ABSCESS [None]
  - SYNCOPE VASOVAGAL [None]
